FAERS Safety Report 18122905 (Version 1)
Quarter: 2020Q3

REPORT INFORMATION
  Report Type: Spontaneous
  Country: CN (occurrence: CN)
  Receive Date: 20200807
  Receipt Date: 20200807
  Transmission Date: 20201103
  Serious: Yes (Other)
  Sender: FDA-Public Use
  Company Number: CN-SA-2020SA201563

PATIENT

DRUGS (5)
  1. GLUCOSE [Concomitant]
     Active Substance: DEXTROSE
     Dosage: 250 ML (INFUSION RATE 15 DRIPS/MIN)
     Route: 041
     Dates: start: 20200722
  2. ELOXATIN [Suspect]
     Active Substance: OXALIPLATIN
     Dosage: 130 MG/M2,  (DAY 1)
     Route: 041
  3. CAPECITABINE. [Concomitant]
     Active Substance: CAPECITABINE
     Dosage: 1000 MG/M2, BID (DAY 1?14)
     Route: 048
     Dates: start: 20200722
  4. GLUCOSE [Concomitant]
     Active Substance: DEXTROSE
     Dosage: 250 ML (40 DRIPS/MIN)
     Route: 041
  5. ELOXATIN [Suspect]
     Active Substance: OXALIPLATIN
     Dosage: 200 MG, QD
     Route: 041
     Dates: start: 20200722, end: 20200722

REACTIONS (3)
  - Dyskinesia [Recovered/Resolved]
  - Laryngospasm [Recovered/Resolved]
  - Blood pressure increased [Recovered/Resolved]

NARRATIVE: CASE EVENT DATE: 20200722
